FAERS Safety Report 14368779 (Version 1)
Quarter: 2018Q1

REPORT INFORMATION
  Report Type: Spontaneous
  Country: US (occurrence: US)
  Receive Date: 20180109
  Receipt Date: 20180109
  Transmission Date: 20180509
  Serious: No
  Sender: FDA-Public Use
  Company Number: US-PFIZER INC-2017556279

PATIENT
  Age: 62 Year
  Sex: Female
  Weight: 131.5 kg

DRUGS (4)
  1. LYRICA [Concomitant]
     Active Substance: PREGABALIN
     Indication: NEUROPATHY PERIPHERAL
     Dosage: 200 MG, 3X/DAY
  2. LYRICA [Concomitant]
     Active Substance: PREGABALIN
     Indication: HERPES ZOSTER
  3. BENADRYL [Concomitant]
     Active Substance: DIPHENHYDRAMINE HYDROCHLORIDE
     Indication: ALLERGY TO METALS
     Dosage: 25 MG, UNK (25 MG TABLET AT LEAST ONCE A DAY OR SOMETIMES TWICE A DAY)
  4. ATROPINE SULFATE/DIPHENOXYLATE HYDROCH LORIDE [Suspect]
     Active Substance: ATROPINE SULFATE\DIPHENOXYLATE HYDROCHLORIDE
     Indication: IRRITABLE BOWEL SYNDROME
     Dosage: UNK (DIPHENOXYLATE-2.5 MG AND ATROPINE 0.025 MG, 1 OR 2 TABLETS AS NEEDED NO CLOSER THAN 4 HOURS)
     Dates: start: 2007

REACTIONS (5)
  - Somnolence [Not Recovered/Not Resolved]
  - Dry mouth [Not Recovered/Not Resolved]
  - Oxygen saturation decreased [Unknown]
  - Product use issue [Recovered/Resolved]
  - Pyrexia [Recovered/Resolved]

NARRATIVE: CASE EVENT DATE: 2007
